FAERS Safety Report 12742516 (Version 1)
Quarter: 2016Q3

REPORT INFORMATION
  Report Type: Spontaneous
  Country: BR (occurrence: BR)
  Receive Date: 20160914
  Receipt Date: 20160914
  Transmission Date: 20161109
  Serious: Yes (Death, Life-Threatening, Other)
  Sender: FDA-Public Use
  Company Number: BR-JNJFOC-20160911273

PATIENT

DRUGS (2)
  1. BUTYLON [Interacting]
     Active Substance: BENTIAMINE\BUCETIN\CAFFEINE\ETHENZAMIDE
     Indication: PRODUCT USED FOR UNKNOWN INDICATION
     Route: 065
  2. FENTANYL. [Suspect]
     Active Substance: FENTANYL
     Indication: PRODUCT USED FOR UNKNOWN INDICATION
     Route: 065

REACTIONS (5)
  - Respiratory depression [Unknown]
  - Persistent depressive disorder [Unknown]
  - Drug interaction [Fatal]
  - Drug abuse [Unknown]
  - Cardio-respiratory arrest [Unknown]
